FAERS Safety Report 18821864 (Version 1)
Quarter: 2021Q1

REPORT INFORMATION
  Report Type: Spontaneous
  Country: CN (occurrence: CN)
  Receive Date: 20210202
  Receipt Date: 20210202
  Transmission Date: 20210419
  Serious: No
  Sender: FDA-Public Use
  Company Number: CN-LUPIN PHARMACEUTICALS INC.-2021-00829

PATIENT
  Age: 36 Year
  Sex: Female

DRUGS (3)
  1. PREDNISONE ACETATE [Suspect]
     Active Substance: PREDNISONE ACETATE
     Dosage: 10 MILLIGRAM, QD (GRADUAL TAPERING TO 10MG DAILY AND THEN STOPPED)
     Route: 065
  2. AZITHROMYCIN ANHYDROUS. [Suspect]
     Active Substance: AZITHROMYCIN ANHYDROUS
     Indication: DIFFUSE PANBRONCHIOLITIS
     Dosage: 500 MILLIGRAM, QD
     Route: 065
  3. PREDNISONE ACETATE [Suspect]
     Active Substance: PREDNISONE ACETATE
     Indication: DIFFUSE PANBRONCHIOLITIS
     Dosage: 30 MILLIGRAM FOR 12 MONTHS
     Route: 065

REACTIONS (1)
  - Diarrhoea [Unknown]
